FAERS Safety Report 5097294-9 (Version None)
Quarter: 2006Q3

REPORT INFORMATION
  Report Type: 
  Country: None (occurrence: None)
  Receive Date: 20060901
  Receipt Date: 20060821
  Transmission Date: 20061208
  Serious: Yes (Other)
  Sender: FDA-Public Use
  Company Number: 2005089977

PATIENT
  Age: 66 Year
  Sex: Male
  Weight: 136.0791 kg

DRUGS (4)
  1. NEURONTIN [Suspect]
     Indication: POLYNEUROPATHY
     Dosage: 900 MG (1 IN 1 D),ORAL
     Route: 048
     Dates: start: 20050101, end: 20050614
  2. PREDNISONE TAB [Suspect]
     Indication: NEUROPATHY
     Dosage: ORAL
     Route: 048
     Dates: start: 20050609, end: 20050615
  3. METOPROLOL (METOPROLOL) [Concomitant]
  4. CARDURA [Concomitant]

REACTIONS (13)
  - AMNESIA [None]
  - ASTHENIA [None]
  - BALANCE DISORDER [None]
  - DEMYELINATION [None]
  - DIARRHOEA [None]
  - DRUG INEFFECTIVE [None]
  - GAMMOPATHY [None]
  - GENERAL PHYSICAL HEALTH DETERIORATION [None]
  - INFLUENZA LIKE ILLNESS [None]
  - LETHARGY [None]
  - MUSCLE SPASMS [None]
  - MUSCULAR WEAKNESS [None]
  - SOMNOLENCE [None]
